FAERS Safety Report 7214309-X (Version None)
Quarter: 2011Q1

REPORT INFORMATION
  Report Type: 
  Country: None (occurrence: None)
  Receive Date: 20110107
  Receipt Date: 20101224
  Transmission Date: 20110831
  Serious: Yes (Death, Hospitalization, Other)
  Sender: FDA-Public Use
  Company Number: PHHY2010BR88715

PATIENT
  Sex: Female

DRUGS (8)
  1. SANDIMMUNE [Suspect]
     Indication: ANAEMIA
     Route: 048
  2. STARLIX [Suspect]
     Indication: DIABETES MELLITUS
     Dosage: 1 DF, BID
  3. IRON [Concomitant]
     Indication: ANAEMIA
     Dosage: 1 TABLET DAILY
     Route: 048
  4. METICORTEN [Concomitant]
     Indication: ANAEMIA
     Dosage: 5MG, 1 TABLET DAILY
     Route: 048
  5. HIDABTAL [Concomitant]
     Indication: CEREBROVASCULAR ACCIDENT
  6. LASIX [Concomitant]
     Indication: ASCITES
     Dosage: 1 DF, BID
     Route: 048
     Dates: start: 20100701
  7. DIOVAN [Suspect]
     Dosage: 80 MG
     Route: 048
  8. OMEPRAZOLE [Concomitant]
     Indication: ABDOMINAL DISCOMFORT
     Dosage: 20 OR 40MG
     Route: 048

REACTIONS (8)
  - THROMBOSIS [None]
  - INFECTION [None]
  - CEREBROVASCULAR ACCIDENT [None]
  - ASCITES [None]
  - ANAEMIA [None]
  - BLOOD PRESSURE DECREASED [None]
  - RESPIRATORY ARREST [None]
  - DIABETES MELLITUS [None]
